FAERS Safety Report 19615016 (Version 2)
Quarter: 2021Q3

REPORT INFORMATION
  Report Type: Report from Study
  Country: GB (occurrence: GB)
  Receive Date: 20210727
  Receipt Date: 20210805
  Transmission Date: 20211014
  Serious: Yes (Other)
  Sender: FDA-Public Use
  Company Number: GB-SAMSUNG BIOEPIS-SB-2021-17925

PATIENT
  Sex: Female

DRUGS (4)
  1. BENEPALI [Suspect]
     Active Substance: ETANERCEPT
     Indication: RHEUMATOID ARTHRITIS
     Route: 058
     Dates: start: 20210510
  2. METHOTREXATE. [Concomitant]
     Active Substance: METHOTREXATE
     Dosage: UNKNOWN
     Route: 065
  3. AZATHIOPRINE. [Concomitant]
     Active Substance: AZATHIOPRINE
     Indication: PRODUCT USED FOR UNKNOWN INDICATION
     Dosage: UNKNOWN
     Route: 065
  4. METHOTREXATE. [Concomitant]
     Active Substance: METHOTREXATE
     Indication: PRODUCT USED FOR UNKNOWN INDICATION
     Dosage: UNKNOWN
     Route: 048

REACTIONS (10)
  - Infection [Unknown]
  - Suicidal ideation [Unknown]
  - Weight increased [Unknown]
  - Anxiety [Unknown]
  - Weight loss poor [Unknown]
  - Drug ineffective [Unknown]
  - Feelings of worthlessness [Unknown]
  - Crying [Unknown]
  - Tonsillitis [Unknown]
  - Depressed mood [Unknown]
